FAERS Safety Report 7588016-8 (Version None)
Quarter: 2011Q3

REPORT INFORMATION
  Report Type: 
  Country: None (occurrence: None)
  Receive Date: 20110705
  Receipt Date: 20110627
  Transmission Date: 20111222
  Serious: No
  Sender: FDA-Public Use
  Company Number: US-PFIZER INC-2011143504

PATIENT
  Sex: Female

DRUGS (1)
  1. SUTENT [Suspect]
     Dosage: 50 MG, 1X/DAY (TAKE 1 CAPSULE BY MOUTH EVERYDAY FOR 28DAYS ON, THEN 14 DAYS OFF)
     Route: 048
     Dates: start: 20110521

REACTIONS (1)
  - DYSGEUSIA [None]
